FAERS Safety Report 9808489 (Version 1)
Quarter: 2014Q1

REPORT INFORMATION
  Report Type: Spontaneous
  Country: US (occurrence: US)
  Receive Date: 20140110
  Receipt Date: 20140110
  Transmission Date: 20141002
  Serious: Yes (Hospitalization)
  Sender: FDA-Public Use
  Company Number: US-MALLINCKRODT-T201305175

PATIENT
  Age: 35 Year
  Sex: Male
  Weight: 110 kg

DRUGS (2)
  1. ANAFRANIL [Suspect]
     Indication: OBSESSIVE-COMPULSIVE DISORDER
     Dosage: 175 MG QD
     Route: 048
     Dates: start: 20131216
  2. ANAFRANIL [Suspect]
     Dosage: UNK
     Route: 048
     Dates: start: 201310, end: 201312

REACTIONS (1)
  - Cerebral haemorrhage [Unknown]
